FAERS Safety Report 16889057 (Version 1)
Quarter: 2019Q4

REPORT INFORMATION
  Report Type: Spontaneous
  Country: CN (occurrence: CN)
  Receive Date: 20191007
  Receipt Date: 20191007
  Transmission Date: 20200122
  Serious: Yes (Other)
  Sender: FDA-Public Use
  Company Number: CN-EMD SERONO-E2B_90071076

PATIENT
  Age: 31 Year
  Sex: Female

DRUGS (3)
  1. GONAL-F [Suspect]
     Active Substance: FOLLITROPIN
     Dates: start: 20190916, end: 20190918
  2. GONAL-F [Suspect]
     Active Substance: FOLLITROPIN
     Indication: PRODUCT USED FOR UNKNOWN INDICATION
     Dosage: (300IU OR 400IU)
     Dates: start: 20190906
  3. GONAL-F [Suspect]
     Active Substance: FOLLITROPIN
     Dates: start: 20190911

REACTIONS (6)
  - Oedema peripheral [Recovering/Resolving]
  - Ascites [Recovering/Resolving]
  - Oedema [Recovering/Resolving]
  - Skin induration [Recovering/Resolving]
  - Localised oedema [Recovering/Resolving]
  - Ovarian hyperstimulation syndrome [Unknown]

NARRATIVE: CASE EVENT DATE: 201909
